FAERS Safety Report 10971992 (Version 1)
Quarter: 2015Q1

REPORT INFORMATION
  Report Type: Spontaneous
  Country: US (occurrence: None)
  Receive Date: 20150330
  Receipt Date: 20150330
  Transmission Date: 20150721
  Serious: Yes (Other)
  Sender: FDA-Public Use
  Company Number: None

PATIENT
  Sex: Female
  Weight: 47.63 kg

DRUGS (3)
  1. DIAZAPAN [Concomitant]
  2. FIORICET/COD [Concomitant]
  3. LYRICA [Suspect]
     Active Substance: PREGABALIN
     Indication: PAIN IN EXTREMITY
     Route: 048
     Dates: start: 200710, end: 201501

REACTIONS (3)
  - Abasia [None]
  - Wheelchair user [None]
  - Dysstasia [None]

NARRATIVE: CASE EVENT DATE: 200710
